FAERS Safety Report 20222237 (Version 1)
Quarter: 2021Q4

REPORT INFORMATION
  Report Type: Spontaneous
  Country: US (occurrence: US)
  Receive Date: 20211223
  Receipt Date: 20211223
  Transmission Date: 20220303
  Serious: Yes (Other)
  Sender: FDA-Public Use
  Company Number: US-MYLANLABS-2021M1095415

PATIENT
  Age: 65 Year
  Sex: Male

DRUGS (11)
  1. TACROLIMUS [Interacting]
     Active Substance: TACROLIMUS
     Indication: Immunosuppressant drug therapy
     Dosage: 4 MG IN THE MORNING AND 3 MG IN THE EVENING
     Route: 065
  2. RIFABUTIN [Interacting]
     Active Substance: RIFABUTIN
     Indication: Pulmonary tuberculosis
     Dosage: UNK
     Route: 065
  3. RIFABUTIN [Interacting]
     Active Substance: RIFABUTIN
     Indication: Tuberculosis of eye
  4. ISONIAZID [Interacting]
     Active Substance: ISONIAZID
     Indication: Pulmonary tuberculosis
     Dosage: UNK
     Route: 065
  5. ISONIAZID [Interacting]
     Active Substance: ISONIAZID
     Indication: Tuberculosis of eye
  6. PYRAZINAMIDE [Interacting]
     Active Substance: PYRAZINAMIDE
     Indication: Pulmonary tuberculosis
     Dosage: UNK
     Route: 065
  7. PYRAZINAMIDE [Interacting]
     Active Substance: PYRAZINAMIDE
     Indication: Tuberculosis of eye
  8. ETHAMBUTOL [Interacting]
     Active Substance: ETHAMBUTOL HYDROCHLORIDE
     Indication: Pulmonary tuberculosis
     Dosage: UNK
     Route: 065
  9. ETHAMBUTOL [Interacting]
     Active Substance: ETHAMBUTOL HYDROCHLORIDE
     Indication: Tuberculosis of eye
  10. MYCOPHENOLATE MOFETIL [Concomitant]
     Active Substance: MYCOPHENOLATE MOFETIL
     Indication: Immunosuppressant drug therapy
     Dosage: 500 MILLIGRAM, BID
     Route: 065
  11. PREDNISONE [Concomitant]
     Active Substance: PREDNISONE
     Indication: Immunosuppressant drug therapy
     Dosage: UNK
     Route: 065

REACTIONS (2)
  - Drug interaction [Recovered/Resolved]
  - Drug level decreased [Recovered/Resolved]
